FAERS Safety Report 18434055 (Version 2)
Quarter: 2021Q2

REPORT INFORMATION
  Report Type: Spontaneous
  Country: US (occurrence: US)
  Receive Date: 20201027
  Receipt Date: 20210602
  Transmission Date: 20210717
  Serious: No
  Sender: FDA-Public Use
  Company Number: US-PFIZER INC-2020415550

PATIENT
  Age: 65 Year
  Sex: Female

DRUGS (1)
  1. IBRANCE [Suspect]
     Active Substance: PALBOCICLIB
     Dosage: 125 MG, 1X/DAY
     Dates: start: 20201015

REACTIONS (5)
  - Fatigue [Unknown]
  - Product use issue [Unknown]
  - Red blood cell count decreased [Unknown]
  - Anaemia [Unknown]
  - Off label use [Unknown]
